FAERS Safety Report 5473754-3 (Version None)
Quarter: 2007Q3

REPORT INFORMATION
  Report Type: 
  Country: None (occurrence: None)
  Receive Date: 20070831
  Receipt Date: 20070621
  Transmission Date: 20080115
  Serious: No
  Sender: FDA-Public Use
  Company Number: 243340

PATIENT
  Age: 74 Year
  Sex: Male

DRUGS (4)
  1. LUCENTIS [Suspect]
     Indication: MACULAR DEGENERATION
     Dates: start: 20070301
  2. LOPRESSOR [Concomitant]
  3. ZESTRIL [Concomitant]
  4. LANOXIN [Concomitant]

REACTIONS (2)
  - ATRIAL FIBRILLATION [None]
  - BLOOD PRESSURE INCREASED [None]
